FAERS Safety Report 17299078 (Version 5)
Quarter: 2020Q1

REPORT INFORMATION
  Report Type: Spontaneous
  Country: US (occurrence: US)
  Receive Date: 20200122
  Receipt Date: 20200128
  Transmission Date: 20200409
  Serious: Yes (Other)
  Sender: FDA-Public Use
  Company Number: ALC2020US000666

PATIENT
  Age: 60 Year
  Sex: Female

DRUGS (1)
  1. PROPARACAINE HCL [Suspect]
     Active Substance: PROPARACAINE HYDROCHLORIDE
     Indication: ANALGESIC THERAPY
     Dosage: UNK
     Route: 065

REACTIONS (3)
  - Persistent corneal epithelial defect [Unknown]
  - Ulcerative keratitis [Unknown]
  - Corneal abrasion [Unknown]
